FAERS Safety Report 15429507 (Version 1)
Quarter: 2018Q3

REPORT INFORMATION
  Report Type: Spontaneous
  Country: KR (occurrence: KR)
  Receive Date: 20180926
  Receipt Date: 20180926
  Transmission Date: 20181010
  Serious: Yes (Other)
  Sender: FDA-Public Use
  Company Number: KR-ABBVIE-18S-090-2451736-00

PATIENT
  Sex: Male

DRUGS (9)
  1. URSA [Concomitant]
     Active Substance: URSODIOL
     Indication: PRODUCT USED FOR UNKNOWN INDICATION
     Route: 048
     Dates: start: 20171017
  2. CLOZARIL [Concomitant]
     Active Substance: CLOZAPINE
     Indication: MENTAL DISORDER
     Route: 048
     Dates: start: 20180129, end: 20180225
  3. ATIVAN [Concomitant]
     Active Substance: LORAZEPAM
     Indication: MENTAL DISORDER
     Route: 048
     Dates: start: 20180323
  4. EXVIERA [Suspect]
     Active Substance: DASABUVIR
     Indication: CHRONIC HEPATITIS C
     Route: 048
     Dates: start: 20180113, end: 20180405
  5. CLOZARIL [Concomitant]
     Active Substance: CLOZAPINE
     Route: 048
     Dates: start: 20180226
  6. VIEKIRAX [Suspect]
     Active Substance: OMBITASVIR\PARITAPREVIR\RITONAVIR
     Indication: CHRONIC HEPATITIS C
     Route: 048
     Dates: start: 20180113, end: 20180405
  7. STILNOX CR [Concomitant]
     Active Substance: ZOLPIDEM TARTRATE
     Indication: MENTAL DISORDER
     Route: 048
     Dates: start: 20180129
  8. RISPERDAL [Concomitant]
     Active Substance: RISPERIDONE
     Indication: MENTAL DISORDER
     Route: 048
     Dates: start: 20180129
  9. CLOZARIL [Concomitant]
     Active Substance: CLOZAPINE
     Route: 048
     Dates: start: 20180423

REACTIONS (5)
  - Hepatitis C [Unknown]
  - Suicide attempt [Unknown]
  - Weight abnormal [Unknown]
  - Depression [Unknown]
  - Mental disorder [Unknown]

NARRATIVE: CASE EVENT DATE: 2018
